FAERS Safety Report 15438905 (Version 1)
Quarter: 2018Q3

REPORT INFORMATION
  Report Type: Report from Study
  Country: ES (occurrence: ES)
  Receive Date: 20180928
  Receipt Date: 20180928
  Transmission Date: 20181010
  Serious: Yes (Other)
  Sender: FDA-Public Use
  Company Number: ES-SUN PHARMACEUTICAL INDUSTRIES LTD-2018RR-185603

PATIENT
  Age: 44 Year
  Sex: Male

DRUGS (1)
  1. OXALIPLATIN. [Suspect]
     Active Substance: OXALIPLATIN
     Indication: COLON CANCER STAGE IV
     Dosage: UNK
     Route: 042

REACTIONS (5)
  - Bronchospasm [Unknown]
  - Dysphagia [Unknown]
  - Pruritus [Unknown]
  - Dysphonia [Unknown]
  - Rash [Unknown]
